FAERS Safety Report 5781994-9 (Version None)
Quarter: 2008Q2

REPORT INFORMATION
  Report Type: 
  Country: None (occurrence: None)
  Receive Date: 20080623
  Receipt Date: 20080616
  Transmission Date: 20081010
  Serious: Yes (Hospitalization)
  Sender: FDA-Public Use
  Company Number: GB-AVENTIS-200815246GDDC

PATIENT
  Age: 10 Year
  Sex: Female
  Weight: 42 kg

DRUGS (5)
  1. LANTUS [Suspect]
     Indication: DIABETES MELLITUS
     Route: 058
  2. AUTOPEN INSULIN INJECTION PEN [Suspect]
  3. HUMALOG [Concomitant]
     Indication: DIABETES MELLITUS
     Route: 058
  4. HUMALOG [Concomitant]
     Dosage: DOSE: 13 IU LUNCH
     Route: 058
  5. HUMALOG [Concomitant]
     Dosage: DOSE: 13 IU DINNER
     Route: 058

REACTIONS (3)
  - BLOOD GLUCOSE INCREASED [None]
  - KETOACIDOSIS [None]
  - PHARMACEUTICAL PRODUCT COMPLAINT [None]
